FAERS Safety Report 21867439 (Version 4)
Quarter: 2023Q2

REPORT INFORMATION
  Report Type: Report from Study
  Country: PL (occurrence: None)
  Receive Date: 20230116
  Receipt Date: 20230405
  Transmission Date: 20230722
  Serious: Yes (Hospitalization)
  Sender: FDA-Public Use
  Company Number: PL-ROCHE-3259064

PATIENT
  Age: 29 Year
  Sex: Male

DRUGS (11)
  1. OCRELIZUMAB [Suspect]
     Active Substance: OCRELIZUMAB
     Indication: Relapsing-remitting multiple sclerosis
     Dosage: DATE OF MOST RECENT DOSE OF OCRELIZUMAB 600 MG PRIOR TO THIS AE ONSET: 27/JUL/2022
     Route: 042
     Dates: start: 20210903
  2. VITAMIN D3 [Concomitant]
     Active Substance: CHOLECALCIFEROL
     Indication: Vitamin D deficiency
     Route: 048
     Dates: start: 20170324
  3. IBUPROFEN [Concomitant]
     Active Substance: IBUPROFEN
     Route: 048
     Dates: start: 20171001
  4. IBUPROFEN [Concomitant]
     Active Substance: IBUPROFEN
     Route: 048
     Dates: start: 20220118, end: 20220122
  5. TAMSULOSIN HYDROCHLORIDE [Concomitant]
     Active Substance: TAMSULOSIN HYDROCHLORIDE
     Route: 048
     Dates: start: 20220602
  6. METHYLPREDNISOLONE [Concomitant]
     Active Substance: METHYLPREDNISOLONE
     Dosage: SUBSEQUENT DOSES RECEIVED ON 23/FEB/2022, 27/JUL/2022
     Route: 042
     Dates: start: 20210903, end: 20210903
  7. METHYLPREDNISOLONE [Concomitant]
     Active Substance: METHYLPREDNISOLONE
     Dosage: SUBSEQUENT DOSES RECEIVED ON 23/FEB/2022, 27/JUL/2022
     Route: 042
     Dates: start: 20220223, end: 20220223
  8. METHYLPREDNISOLONE [Concomitant]
     Active Substance: METHYLPREDNISOLONE
     Dosage: SUBSEQUENT DOSES RECEIVED ON 23/FEB/2022, 27/JUL/2022
     Route: 042
     Dates: start: 20220727, end: 20220727
  9. ZYRTEC (POLAND) [Concomitant]
     Dosage: SUBSEQUENT DOSES RECEIVED ON 23/FEB/2022, 27/JUL/2022.
     Route: 048
     Dates: start: 20210903, end: 20210903
  10. XYVELAM [Concomitant]
     Indication: Epididymitis
     Route: 048
     Dates: start: 20220922, end: 20221001
  11. UNIDOX (POLAND) [Concomitant]
     Indication: Multiple sclerosis relapse
     Route: 048
     Dates: start: 20220922, end: 20221001

REACTIONS (1)
  - Epididymitis [Recovering/Resolving]

NARRATIVE: CASE EVENT DATE: 20221220
